FAERS Safety Report 14103170 (Version 1)
Quarter: 2017Q4

REPORT INFORMATION
  Report Type: Spontaneous
  Country: US (occurrence: US)
  Receive Date: 20171018
  Receipt Date: 20171018
  Transmission Date: 20180321
  Serious: No
  Sender: FDA-Public Use
  Company Number: US-BAUSCH-BL-2017-026116

PATIENT
  Age: 59 Year
  Sex: Female

DRUGS (1)
  1. WELLBUTRIN XL [Suspect]
     Active Substance: BUPROPION HYDROCHLORIDE
     Indication: PRODUCT USED FOR UNKNOWN INDICATION
     Dosage: PRESCRIBED 450 MG DOSE: ONE TABLET OF 150 MG AND ONE TABLET OF 300 MG ONCE A DAY.
     Route: 065

REACTIONS (2)
  - Treatment noncompliance [Unknown]
  - Withdrawal syndrome [Unknown]
